FAERS Safety Report 5635308-5 (Version None)
Quarter: 2008Q1

REPORT INFORMATION
  Report Type: 
  Country: None (occurrence: None)
  Receive Date: 20080222
  Receipt Date: 20080212
  Transmission Date: 20080703
  Serious: Yes (Other)
  Sender: FDA-Public Use
  Company Number: US-PFIZER INC-2007107901

PATIENT
  Sex: Male

DRUGS (1)
  1. DILANTIN [Suspect]

REACTIONS (7)
  - ANTICONVULSANT DRUG LEVEL DECREASED [None]
  - BRAIN OPERATION [None]
  - CONVULSION [None]
  - MULTIPLE ALLERGIES [None]
  - PARAESTHESIA [None]
  - SINUS OPERATION [None]
  - STOMACH DISCOMFORT [None]
